FAERS Safety Report 8255458-7 (Version None)
Quarter: 2012Q1

REPORT INFORMATION
  Report Type: 
  Country: None (occurrence: None)
  Receive Date: 20120322
  Receipt Date: 20111125
  Transmission Date: 20120608
  Serious: Yes (Hospitalization)
  Sender: FDA-Public Use
  Company Number: UTC-012849

PATIENT
  Age: 77 Year
  Sex: Male
  Weight: 77.27 kg

DRUGS (4)
  1. TYVASO [Suspect]
     Indication: SYSTEMIC SCLEROSIS
     Dosage: 18-54 MICROGRAMS (4 IN 1 D), INHALATION
     Route: 055
     Dates: start: 20091207
  2. DIURETICS (DIURETICS) [Concomitant]
  3. TRACLEER [Suspect]
     Indication: PRODUCT USED FOR UNKNOWN INDICATION
  4. ADCIRCA [Concomitant]

REACTIONS (1)
  - MYOCARDIAL INFARCTION [None]
